FAERS Safety Report 6604217-7 (Version None)
Quarter: 2010Q1

REPORT INFORMATION
  Report Type: 
  Country: None (occurrence: None)
  Receive Date: 20100226
  Receipt Date: 20090828
  Transmission Date: 20100710
  Serious: No
  Sender: FDA-Public Use
  Company Number: A0795756A

PATIENT
  Age: 25 Year
  Sex: Male

DRUGS (1)
  1. LAMOTRIGINE [Suspect]
     Indication: BIPOLAR DISORDER
     Dosage: 500MG VARIABLE DOSE
     Route: 048
     Dates: start: 20090315

REACTIONS (2)
  - AFFECT LABILITY [None]
  - DRUG INEFFECTIVE [None]
